FAERS Safety Report 24845041 (Version 2)
Quarter: 2025Q4

REPORT INFORMATION
  Report Type: Spontaneous
  Country: US (occurrence: US)
  Receive Date: 20250115
  Receipt Date: 20251223
  Transmission Date: 20260118
  Serious: Yes (Other)
  Sender: COOPERSURGICAL
  Company Number: US-COOPERSURGICAL, INC.-2025CPS000045

PATIENT
  Age: 50 Year
  Sex: Female
  Weight: 131.52 kg

DRUGS (1)
  1. PARAGARD T 380A [Suspect]
     Active Substance: COPPER
     Indication: Contraception
     Dosage: UNK
     Route: 015
     Dates: start: 20140904

REACTIONS (16)
  - Iron deficiency anaemia [Unknown]
  - Device breakage [Not Recovered/Not Resolved]
  - Foreign body in reproductive tract [Not Recovered/Not Resolved]
  - Complication of device removal [Not Recovered/Not Resolved]
  - Embedded device [Not Recovered/Not Resolved]
  - Abnormal uterine bleeding [Recovered/Resolved]
  - Heavy menstrual bleeding [Recovered/Resolved]
  - Anxiety [Unknown]
  - Cervicitis [Unknown]
  - Endometrial thickening [Recovering/Resolving]
  - Pain [Unknown]
  - Device dislocation [Not Recovered/Not Resolved]
  - Menstruation irregular [Recovered/Resolved]
  - Pelvic discomfort [Unknown]
  - Actinomycosis [Recovered/Resolved]
  - Bacterial vaginosis [Recovering/Resolving]

NARRATIVE: CASE EVENT DATE: 20161212
